FAERS Safety Report 22190474 (Version 1)
Quarter: 2023Q2

REPORT INFORMATION
  Report Type: Spontaneous
  Country: US (occurrence: US)
  Receive Date: 20230410
  Receipt Date: 20230410
  Transmission Date: 20230721
  Serious: No
  Sender: FDA-Public Use
  Company Number: US-ELI_LILLY_AND_COMPANY-US202304003812

PATIENT
  Sex: Female

DRUGS (10)
  1. HUMULIN N [Suspect]
     Active Substance: INSULIN HUMAN
     Indication: Latent autoimmune diabetes in adults
     Dosage: 16 INTERNATIONAL UNIT, EACH MORNING
     Route: 058
  2. HUMULIN N [Suspect]
     Active Substance: INSULIN HUMAN
     Dosage: 20 INTERNATIONAL UNIT, EACH EVENING
     Route: 058
  3. HUMULIN N [Suspect]
     Active Substance: INSULIN HUMAN
     Dosage: 16 INTERNATIONAL UNIT, EACH MORNING
     Route: 058
  4. HUMULIN N [Suspect]
     Active Substance: INSULIN HUMAN
     Dosage: 20 INTERNATIONAL UNIT, EACH EVENING
     Route: 058
  5. HUMALOG [Suspect]
     Active Substance: INSULIN LISPRO
     Indication: Latent autoimmune diabetes in adults
     Dosage: 06 INTERNATIONAL UNIT, UNKNOWN
     Route: 058
  6. HUMALOG [Suspect]
     Active Substance: INSULIN LISPRO
     Dosage: 8 INTERNATIONAL UNIT, UNKNOWN
     Route: 058
  7. HUMALOG [Suspect]
     Active Substance: INSULIN LISPRO
     Dosage: 10 INTERNATIONAL UNIT, UNKNOWN
     Route: 058
  8. HUMALOG [Suspect]
     Active Substance: INSULIN LISPRO
     Dosage: 06 INTERNATIONAL UNIT, UNKNOWN
     Route: 058
  9. HUMALOG [Suspect]
     Active Substance: INSULIN LISPRO
     Dosage: 8 INTERNATIONAL UNIT, UNKNOWN
     Route: 058
  10. HUMALOG [Suspect]
     Active Substance: INSULIN LISPRO
     Dosage: 10 INTERNATIONAL UNIT, UNKNOWN
     Route: 058

REACTIONS (9)
  - Dry eye [Unknown]
  - Visual impairment [Unknown]
  - Sleep apnoea syndrome [Unknown]
  - Menopause [Unknown]
  - Incorrect product administration duration [Unknown]
  - Glycosylated haemoglobin decreased [Unknown]
  - Blood glucose fluctuation [Unknown]
  - Incorrect dose administered [Unknown]
  - Blood glucose increased [Unknown]
